FAERS Safety Report 8553968-6 (Version None)
Quarter: 2012Q3

REPORT INFORMATION
  Report Type: 
  Country: None (occurrence: None)
  Receive Date: 20120731
  Receipt Date: 20120724
  Transmission Date: 20120928
  Serious: Yes (Other)
  Sender: FDA-Public Use
  Company Number: GR-PFIZER INC-2012164912

PATIENT
  Age: 77 Year
  Sex: Male

DRUGS (1)
  1. TORISEL [Suspect]
     Indication: MANTLE CELL LYMPHOMA
     Dosage: 75 MG, WEEKLY
     Dates: start: 20120622, end: 20120101

REACTIONS (3)
  - ORAL PAIN [None]
  - TONGUE ULCERATION [None]
  - APHTHOUS STOMATITIS [None]
